FAERS Safety Report 9175624 (Version 1)
Quarter: 2012Q4

REPORT INFORMATION
  Report Type: 
  Country: FR (occurrence: FR)
  Receive Date: 20120911
  Receipt Date: 20120911
  Transmission Date: 20130627
  Serious: Yes (Death, Other)
  Sender: FDA-Public Use
  Company Number: FR-RB-044092-12

PATIENT
  Age: 44 Year
  Sex: Male

DRUGS (5)
  1. SUBUTEX [Suspect]
     Route: 042
  2. SUBUTEX [Suspect]
     Indication: SUPPLEMENTATION THERAPY
     Dosage: Dosing details unknown
     Route: 042
  3. DEPAKOTE NOS (VALPROIC ACID) [Concomitant]
     Indication: PRODUCT USED FOR UNKNOWN INDICATION
     Dosage: Dosing details unknown
     Route: 065
  4. SEROPLEX NOS (ESCITALOPRAM) [Concomitant]
     Indication: PRODUCT USED FOR UNKNOWN INDICATION
     Dosage: Dosing details unknown
     Route: 065
  5. SURMONTIL NOS (TRIMIPRAMINE) [Concomitant]
     Indication: PRODUCT USED FOR UNKNOWN INDICATION
     Dosage: Dosing details unknown
     Route: 065

REACTIONS (2)
  - Cardio-respiratory arrest [Fatal]
  - Intentional drug misuse [Recovered/Resolved]
